FAERS Safety Report 8557204-6 (Version None)
Quarter: 2012Q3

REPORT INFORMATION
  Report Type: 
  Country: None (occurrence: None)
  Receive Date: 20120801
  Receipt Date: 20120727
  Transmission Date: 20120928
  Serious: Yes (Hospitalization, Other)
  Sender: FDA-Public Use
  Company Number: PHEH2008US06031

PATIENT
  Sex: Female
  Weight: 79.9 kg

DRUGS (77)
  1. QINOLON [Concomitant]
  2. FUROSEMIDE [Concomitant]
     Dosage: 20 MG
  3. GABAPENTIN [Concomitant]
     Dosage: 300 MG
  4. NYSTATIN [Concomitant]
     Dosage: UNK
  5. BACTRIM DS [Concomitant]
  6. FOSAMAX [Concomitant]
     Dosage: 70 MG / Q WEEK
     Route: 048
  7. SENOKOT                                 /UNK/ [Concomitant]
  8. COMPAZINE [Concomitant]
  9. DARVOCET-N 50 [Concomitant]
  10. CLINDAMYCIN [Concomitant]
     Dosage: 1300 MG, QD
     Route: 048
     Dates: end: 20090112
  11. ABRAXANE [Concomitant]
  12. PACLITAXEL [Concomitant]
  13. REGLAN [Concomitant]
  14. FAMVIR                                  /NET/ [Concomitant]
     Dosage: 500 MG
  15. ZOVIRAX [Concomitant]
     Dosage: 5%
  16. CYCLOBENZAPRINE [Concomitant]
     Dosage: 10 MG,
  17. CHLORHEXIDINE GLUCONATE [Concomitant]
     Dosage: 0.12%
  18. ETODOLAC [Concomitant]
     Dosage: 400 MG
  19. PREDNISOLONE [Concomitant]
     Dosage: 15 MG/5ML
  20. VICODIN [Concomitant]
     Dosage: UNK / TID PRN
  21. ZOFRAN [Concomitant]
  22. MAALOX                                  /USA/ [Concomitant]
  23. CYMBALTA [Concomitant]
     Dosage: 30 MG, DAILY
  24. METOPROLOL TARTRATE [Concomitant]
     Dosage: 50 MG, BID
  25. AREDIA [Suspect]
  26. NAPROXEN (ALEVE) [Concomitant]
  27. PACLITAXEL [Concomitant]
  28. ROCEPHIN [Concomitant]
     Dosage: 1 GM
     Dates: end: 20090112
  29. TORADOL [Concomitant]
  30. DULCOLAX [Concomitant]
  31. VANCOCIN HYDROCHLORIDE [Concomitant]
  32. PAXIL [Concomitant]
  33. NEURONTIN [Concomitant]
  34. ULTRAM [Concomitant]
  35. HYDROMORPHINE HYDROCHLORIDE [Concomitant]
     Dosage: 2 MG
  36. CLOTRIMAZOLE [Concomitant]
     Dosage: 10 MG
  37. OSCAL 500-D [Concomitant]
  38. PERIDEX [Concomitant]
  39. LOPRESSOR [Concomitant]
     Dosage: 50 MG, BID
     Route: 048
  40. CHEMOTHERAPEUTICS NOS [Concomitant]
  41. AVASTIN [Concomitant]
  42. ATENOLOL [Concomitant]
     Dates: end: 20090112
  43. TAXOTERE [Concomitant]
  44. LYRICA [Concomitant]
  45. VALTREX [Concomitant]
  46. LODINE [Concomitant]
     Dosage: 400 MG / BID
     Route: 048
  47. FLEXERIL [Concomitant]
     Dosage: 10 MG / TID PRN
     Route: 048
     Dates: end: 20070118
  48. ARIMIDEX [Concomitant]
  49. PERCOCET [Concomitant]
  50. CARDIZEM [Concomitant]
  51. LEVAQUIN [Concomitant]
     Dosage: 500 MG
  52. PAROXETINE HCL [Concomitant]
     Dosage: 20 MG
  53. TRAMADOL HYDROCHLORIDE [Concomitant]
     Dosage: 50 MG
  54. LASIX [Concomitant]
     Dosage: 40 MG / QD
     Route: 048
     Dates: end: 20090112
  55. BIOTENE [Concomitant]
  56. MEGESTROL ACETATE [Concomitant]
  57. CLEOCIN HYDROCHLORIDE [Concomitant]
  58. SENNA-GEN [Concomitant]
     Dosage: 8.65 MG, DAILY
  59. ZOMETA [Suspect]
     Dates: end: 20060401
  60. DECADRON [Concomitant]
  61. SENOKOT [Concomitant]
  62. CIPRO [Concomitant]
     Dosage: 500 MG, BID
     Route: 048
     Dates: end: 20090112
  63. LORAZEPAM [Concomitant]
     Dosage: 0.5 MG
  64. DOXYCYCLINE HCL [Concomitant]
     Dosage: 100 MG
  65. TRIAMCINOLONE [Concomitant]
     Dosage: 0.1 %
  66. ATIVAN [Concomitant]
     Indication: ANXIETY
     Dosage: 0.5 MG / BID PRN
     Dates: end: 20070118
  67. DILTIAZEM [Concomitant]
     Dosage: UNK
     Dates: end: 20090112
  68. DILAUDID [Concomitant]
  69. XELODA [Concomitant]
  70. DURAGESIC-100 [Concomitant]
  71. ZITHROMAX [Concomitant]
     Dosage: 250 MG
  72. SKELAXIN [Concomitant]
     Dosage: 400 MG / 1-2 Q8HRS PRN
     Route: 048
     Dates: end: 20070118
  73. DEXAMETHASONE [Concomitant]
     Dosage: 4 MG
  74. OXYCODONE HCL AND ACETAMINOPHEN [Concomitant]
     Dosage: 5/325
  75. METOCLOPRAMIDE [Concomitant]
     Dosage: 10 MG
  76. DIFLUCAN [Concomitant]
     Dosage: 100 MG / QD
     Route: 048
     Dates: end: 20090112
  77. ANASTROZOLE [Concomitant]
     Dosage: 1 MG, DAILY

REACTIONS (100)
  - HYPERTENSION [None]
  - OSTEOMYELITIS [None]
  - MYOSITIS [None]
  - ARTHRALGIA [None]
  - DYSURIA [None]
  - AORTIC ARTERIOSCLEROSIS [None]
  - HAEMORRHOIDS [None]
  - WHEELCHAIR USER [None]
  - BLOOD GLUCOSE INCREASED [None]
  - ABSCESS [None]
  - VOMITING [None]
  - DIARRHOEA [None]
  - DYSTHYMIC DISORDER [None]
  - CELLULITIS [None]
  - FATIGUE [None]
  - THYROID NEOPLASM [None]
  - TACHYCARDIA [None]
  - TOOTHACHE [None]
  - EMOTIONAL DISTRESS [None]
  - NEUROPATHY PERIPHERAL [None]
  - VAGINAL INFECTION [None]
  - MYALGIA [None]
  - DEPRESSION [None]
  - OESTROGEN RECEPTOR ASSAY POSITIVE [None]
  - MELANOCYTIC NAEVUS [None]
  - MACULE [None]
  - CHRONIC SINUSITIS [None]
  - GAIT DISTURBANCE [None]
  - GOITRE [None]
  - NEURITIS [None]
  - LIGAMENT RUPTURE [None]
  - JAW FRACTURE [None]
  - GASTROOESOPHAGEAL REFLUX DISEASE [None]
  - ONYCHOMYCOSIS [None]
  - EAR PAIN [None]
  - BONE LESION [None]
  - SINUS DISORDER [None]
  - BREAST CANCER RECURRENT [None]
  - BODY TEMPERATURE FLUCTUATION [None]
  - DIABETES MELLITUS [None]
  - GASTROINTESTINAL SOUNDS ABNORMAL [None]
  - PAIN IN JAW [None]
  - SPINAL PAIN [None]
  - BACK PAIN [None]
  - SKIN LESION [None]
  - OTITIS MEDIA [None]
  - OSTEOPENIA [None]
  - BLOOD GLUCOSE DECREASED [None]
  - PARAESTHESIA [None]
  - PERIPHERAL VASCULAR DISORDER [None]
  - NIGHT SWEATS [None]
  - PALPITATIONS [None]
  - MASTICATION DISORDER [None]
  - DYSPHAGIA [None]
  - MENINGITIS [None]
  - ASTHENIA [None]
  - MUSCLE SPASMS [None]
  - CYSTITIS HAEMORRHAGIC [None]
  - ACANTHOMA [None]
  - WHITE BLOOD CELL COUNT INCREASED [None]
  - LOOSE TOOTH [None]
  - EXPOSED BONE IN JAW [None]
  - OSTEONECROSIS OF JAW [None]
  - LACRIMATION INCREASED [None]
  - BLOOD URINE PRESENT [None]
  - URINARY RETENTION [None]
  - BLOOD UREA NITROGEN/CREATININE RATIO INCREASED [None]
  - BAND NEUTROPHIL COUNT INCREASED [None]
  - DEVICE RELATED INFECTION [None]
  - MUSCULOSKELETAL PAIN [None]
  - GENERAL PHYSICAL HEALTH DETERIORATION [None]
  - DEFORMITY [None]
  - INFECTION [None]
  - NEUROGENIC BLADDER [None]
  - HYPOAESTHESIA [None]
  - UPPER RESPIRATORY TRACT INFECTION [None]
  - PAIN [None]
  - EXTERNAL EAR DISORDER [None]
  - SQUAMOUS CELL CARCINOMA [None]
  - LOCAL SWELLING [None]
  - GASTROENTERITIS VIRAL [None]
  - NAUSEA [None]
  - ABDOMINAL PAIN [None]
  - CARDIAC FAILURE CONGESTIVE [None]
  - CONSTIPATION [None]
  - DIABETIC FOOT [None]
  - DENTAL CARIES [None]
  - MENOPAUSAL SYMPTOMS [None]
  - BLOOD TRIGLYCERIDES INCREASED [None]
  - SPINAL OSTEOARTHRITIS [None]
  - ANXIETY [None]
  - DYSKINESIA [None]
  - ORAL CANDIDIASIS [None]
  - BRONCHITIS [None]
  - ALOPECIA [None]
  - SENSORY DISTURBANCE [None]
  - CATHETER SITE HAEMATOMA [None]
  - THYROID CYST [None]
  - HYPOKALAEMIA [None]
  - OSTEOARTHRITIS [None]
